FAERS Safety Report 8566848 (Version 2)
Quarter: 2012Q4

REPORT INFORMATION
  Report Type: 
  Country: US (occurrence: US)
  Receive Date: 20120517
  Receipt Date: 20121128
  Transmission Date: 20130627
  Serious: Yes (Life-Threatening, Hospitalization, Other)
  Sender: FDA-Public Use
  Company Number: US-ASTRAZENECA-2012SE29894

PATIENT
  Age: 61 Year
  Sex: Female

DRUGS (1)
  1. ATACAND [Suspect]
     Indication: HYPERTENSION
     Route: 048
     Dates: end: 2012

REACTIONS (9)
  - Dysuria [Unknown]
  - Cardiac arrest [Unknown]
  - Oedema peripheral [Not Recovered/Not Resolved]
  - Wound secretion [Not Recovered/Not Resolved]
  - Cataract [Unknown]
  - Renal disorder [Unknown]
  - Gait disturbance [Not Recovered/Not Resolved]
  - Asthenia [Not Recovered/Not Resolved]
  - Pruritus [Not Recovered/Not Resolved]
